FAERS Safety Report 24605155 (Version 1)
Quarter: 2024Q4

REPORT INFORMATION
  Report Type: Spontaneous
  Country: US (occurrence: US)
  Receive Date: 20241111
  Receipt Date: 20241111
  Transmission Date: 20250115
  Serious: No
  Sender: PARATEK PHARMACEUTICALS
  Company Number: US-PARATEK PHARMACEUTICALS, INC.-2024PTK00283

PATIENT
  Age: 40 Year
  Sex: Female
  Weight: 104 kg

DRUGS (18)
  1. NUZYRA [Suspect]
     Active Substance: OMADACYCLINE
     Indication: Mycobacterium abscessus infection
     Dosage: 300 MG, 1X/DAY
     Route: 048
     Dates: start: 20240314, end: 20240327
  2. NUZYRA [Suspect]
     Active Substance: OMADACYCLINE
     Indication: Skin bacterial infection
  3. AMIKACIN [Concomitant]
     Active Substance: AMIKACIN
     Dosage: UNK
     Dates: end: 20240322
  4. LINEZOLID [Concomitant]
     Active Substance: LINEZOLID
  5. CEFOXITIN [Concomitant]
     Active Substance: CEFOXITIN SODIUM
  6. AMLODIPINE [Concomitant]
     Active Substance: AMLODIPINE BESYLATE
  7. CLONIDINE [Concomitant]
     Active Substance: CLONIDINE
  8. DULOXETINE [Concomitant]
     Active Substance: DULOXETINE
  9. ERGOCALCIFEROL [Concomitant]
     Active Substance: ERGOCALCIFEROL
  10. GABAPENTIN [Concomitant]
     Active Substance: GABAPENTIN
  11. HYDRALAZINE [Concomitant]
     Active Substance: HYDRALAZINE HYDROCHLORIDE
  12. ACETAMINOPHEN\HYDROCODONE [Concomitant]
     Active Substance: ACETAMINOPHEN\HYDROCODONE
  13. INSULIN NOS [Concomitant]
     Active Substance: INSULIN NOS
  14. LEVOTHYROXINE [Concomitant]
     Active Substance: LEVOTHYROXINE
  15. LISINOPRIL [Concomitant]
     Active Substance: LISINOPRIL
  16. MELATONIN [Concomitant]
     Active Substance: MELATONIN
  17. OMEPRAZOLE [Concomitant]
     Active Substance: OMEPRAZOLE
  18. SEVELAMER [Concomitant]
     Active Substance: SEVELAMER

REACTIONS (4)
  - Abdominal pain upper [Recovered/Resolved]
  - Nausea [Recovered/Resolved]
  - Lipase increased [Unknown]
  - Off label use [Recovered/Resolved]

NARRATIVE: CASE EVENT DATE: 20240314
